FAERS Safety Report 20987058 (Version 1)
Quarter: 2022Q2

REPORT INFORMATION
  Report Type: Spontaneous
  Country: CA (occurrence: None)
  Receive Date: 20220619
  Receipt Date: 20220619
  Transmission Date: 20220721
  Serious: No
  Sender: FDA-Public Use
  Company Number: None

PATIENT
  Age: 52 Year
  Sex: Female
  Weight: 72 kg

DRUGS (1)
  1. NEUTROGENA HEALTHY SKIN FACE SUNSCREEN SPF 15 [Suspect]
     Active Substance: OCTINOXATE\OXYBENZONE
     Indication: Prophylaxis against solar radiation
     Route: 061
     Dates: start: 20220618, end: 20220618

REACTIONS (3)
  - Application site rash [None]
  - Rash pruritic [None]
  - Rash erythematous [None]

NARRATIVE: CASE EVENT DATE: 20220618
